FAERS Safety Report 6417902-7 (Version None)
Quarter: 2009Q4

REPORT INFORMATION
  Report Type: 
  Country: None (occurrence: None)
  Receive Date: 20091028
  Receipt Date: 20091021
  Transmission Date: 20100525
  Serious: Yes (Other)
  Sender: FDA-Public Use
  Company Number: B0517839A

PATIENT
  Age: 27 Year
  Sex: Female

DRUGS (2)
  1. KIVEXA [Suspect]
  2. VIRAMUNE [Suspect]
     Indication: HIV INFECTION

REACTIONS (1)
  - STEVENS-JOHNSON SYNDROME [None]
